FAERS Safety Report 7130133-0 (Version None)
Quarter: 2010Q4

REPORT INFORMATION
  Report Type: 
  Country: None (occurrence: None)
  Receive Date: 20101201
  Receipt Date: 20101122
  Transmission Date: 20110411
  Serious: Yes (Death)
  Sender: FDA-Public Use
  Company Number: IT-CELGENEUS-083-21880-10100707

PATIENT
  Sex: Male

DRUGS (8)
  1. REVLIMID [Suspect]
     Indication: MULTIPLE MYELOMA
     Route: 048
     Dates: start: 20100310
  2. REVLIMID [Suspect]
     Route: 048
     Dates: start: 20100913, end: 20100930
  3. CYCLOPHOSPHAMIDE [Suspect]
     Indication: MULTIPLE MYELOMA
     Route: 048
     Dates: start: 20100310
  4. CYCLOPHOSPHAMIDE [Suspect]
     Route: 048
     Dates: start: 20100913, end: 20100930
  5. PREDNISONE [Suspect]
     Indication: MULTIPLE MYELOMA
     Route: 048
     Dates: start: 20100310
  6. PREDNISONE [Suspect]
     Route: 048
     Dates: start: 20100913, end: 20100930
  7. LANSOPRAZOLE [Concomitant]
     Route: 065
     Dates: start: 20100310, end: 20100930
  8. ASPIRIN [Concomitant]
     Route: 065
     Dates: start: 20100310, end: 20100930

REACTIONS (1)
  - PULMONARY EMBOLISM [None]
